FAERS Safety Report 9459236 (Version 5)
Quarter: 2013Q4

REPORT INFORMATION
  Report Type: Spontaneous
  Country: US (occurrence: US)
  Receive Date: 20130814
  Receipt Date: 20131209
  Transmission Date: 20140711
  Serious: Yes (Other)
  Sender: FDA-Public Use
  Company Number: US-PFIZER INC-2013233388

PATIENT
  Age: 72 Year
  Sex: Female
  Weight: 79.82 kg

DRUGS (20)
  1. XELJANZ [Suspect]
     Indication: RHEUMATOID ARTHRITIS
     Dosage: 5 MG, 2X/DAY
     Route: 048
     Dates: start: 20130305, end: 20130509
  2. XELJANZ [Suspect]
     Indication: SPINAL OSTEOARTHRITIS
  3. XELJANZ [Suspect]
     Indication: MYALGIA
  4. XELJANZ [Suspect]
     Indication: MYOSITIS
  5. XELJANZ [Suspect]
     Indication: HYPERTENSION
  6. GABAPENTIN [Concomitant]
     Indication: FIBROMYALGIA
     Dosage: 300 MG, 3X/DAY
     Route: 048
  7. PREDNISONE [Concomitant]
     Indication: OSTEOARTHRITIS
     Dosage: 5 MG, 1X/DAY
  8. PREDNISONE [Concomitant]
     Dosage: 2.5 MG, 1X/DAY
  9. PREDNISONE [Concomitant]
     Dosage: 2.5 MG, ALTERNATE DAY
  10. CELEBREX [Concomitant]
     Indication: OSTEOARTHRITIS
     Dosage: 200 MG, 1X/DAY
     Route: 048
  11. ATORVASTATIN [Concomitant]
     Indication: BLOOD CHOLESTEROL INCREASED
     Dosage: 20 MG, 1X/DAY
  12. DIOVAN HCT [Concomitant]
     Indication: HYPERTENSION
     Dosage: (VALSARTAN 2.5/HYDROCHLOROTHIAZIDE 6.25MG), 1X/DAY
  13. METHOTREXATE SODIUM [Concomitant]
     Dosage: 10MG, WEEKLY (2.5 MG 4 TABLETS EVERY WEEK)
     Route: 048
  14. LIPITOR [Concomitant]
     Dosage: 20 MG, 1X/DAY
  15. HYDROCODONE W/ACETAMINOPHEN [Concomitant]
     Dosage: HYDROCODONE 5 MG-ACETAMINOPHEN 325 MG TABLET, AS NEEDED
  16. FOLIC ACID [Concomitant]
     Dosage: 400 UG, 1X/DAY
  17. BISOPROLOL-HYDROCHLOROTHIAZIDE [Concomitant]
     Dosage: 1 DF (BISOPROLOL-HYDROCHLOROTHIAZIDE 2.5MG-6.25MG), 1X/DAY
  18. ASPIRIN [Concomitant]
     Dosage: 81 MG, 1X/DAY
  19. SYNTHROID [Concomitant]
     Dosage: 50 UG, 1X/DAY
  20. LANSOPRAZOLE [Concomitant]
     Dosage: 15 MG, 1X/DAY

REACTIONS (32)
  - Cholelithiasis [Unknown]
  - Carcinoid tumour of the stomach [Unknown]
  - Helicobacter gastritis [Unknown]
  - Metaplasia [Unknown]
  - Oesophageal neoplasm [Unknown]
  - Gastric polyps [Unknown]
  - Gastritis [Unknown]
  - Gastrooesophageal reflux disease [Recovered/Resolved]
  - Hiatus hernia [Unknown]
  - Abdominal pain [Unknown]
  - Arthritis [Recovering/Resolving]
  - Musculoskeletal stiffness [Unknown]
  - Arthralgia [Unknown]
  - Joint swelling [Unknown]
  - Local swelling [Unknown]
  - Hypothyroidism [Unknown]
  - Weight decreased [Unknown]
  - Headache [Unknown]
  - Back pain [Unknown]
  - Fear [Unknown]
  - Blood triglycerides abnormal [Unknown]
  - Myofascial pain syndrome [Unknown]
  - Bursitis [Unknown]
  - Osteoarthritis [Unknown]
  - Synovitis [Unknown]
  - Tenderness [Unknown]
  - Neuroendocrine tumour [Unknown]
  - Inflammation [Unknown]
  - Lipase increased [Unknown]
  - Dyspepsia [Unknown]
  - Epigastric discomfort [Unknown]
  - Duodenal polyp [Unknown]
